FAERS Safety Report 7646764-5 (Version None)
Quarter: 2011Q3

REPORT INFORMATION
  Report Type: 
  Country: None (occurrence: None)
  Receive Date: 20110729
  Receipt Date: 20110729
  Transmission Date: 20111222
  Serious: No
  Sender: FDA-Public Use
  Company Number: None

PATIENT
  Sex: Male
  Weight: 99.7913 kg

DRUGS (1)
  1. AMIODARONE HYDROCHLORIDE [Suspect]
     Indication: CARDIAC DISORDER
     Dosage: 1/2 TAB DAILY ORAL
     Route: 048
     Dates: start: 20101201, end: 20110303

REACTIONS (3)
  - GAIT DISTURBANCE [None]
  - ASTHENIA [None]
  - HYPOTHYROIDISM [None]
